FAERS Safety Report 8840771 (Version 1)
Quarter: 2012Q4

REPORT INFORMATION
  Report Type: 
  Country: CH (occurrence: CH)
  Receive Date: 20121015
  Receipt Date: 20121015
  Transmission Date: 20130627
  Serious: Yes (Disabling, Other)
  Sender: FDA-Public Use
  Company Number: PHHY2012CH089847

PATIENT
  Age: 50 Year
  Sex: Female

DRUGS (7)
  1. 5-FLUOROURACIL [Suspect]
     Indication: BREAST CANCER FEMALE
     Dosage: 500 mg/m2, cyclic, per 3 weeks
     Route: 041
     Dates: start: 20120810, end: 20120811
  2. EPIRUBICIN [Suspect]
     Indication: BREAST CANCER FEMALE
     Route: 041
     Dates: start: 20120810
  3. EPIRUBICIN [Suspect]
     Dosage: 100 mg/m2
     Route: 041
     Dates: start: 20120904
  4. CYCLOPHOSPHAMIDE [Suspect]
     Indication: BREAST CANCER FEMALE
     Route: 041
     Dates: start: 20120810
  5. CYCLOPHOSPHAMIDE [Suspect]
     Dosage: 500 mg/m2
     Route: 041
     Dates: start: 20120904
  6. PAROXETINE [Concomitant]
     Dosage: 20 mg, QD
     Route: 048
  7. DAFALGAN [Concomitant]
     Route: 048

REACTIONS (10)
  - Cerebral infarction [Recovering/Resolving]
  - Hemiplegia [Recovering/Resolving]
  - Hemiparesis [Recovering/Resolving]
  - Balance disorder [Recovering/Resolving]
  - Facial paresis [Recovering/Resolving]
  - Hypoaesthesia [Recovering/Resolving]
  - Hyperreflexia [Recovering/Resolving]
  - Hoffmann^s sign [Recovering/Resolving]
  - Aphasia [Recovering/Resolving]
  - Clonus [Recovering/Resolving]
